FAERS Safety Report 7656118-3 (Version None)
Quarter: 2011Q3

REPORT INFORMATION
  Report Type: 
  Country: None (occurrence: None)
  Receive Date: 20110801
  Receipt Date: 20110722
  Transmission Date: 20111222
  Serious: Yes (Disabling, Other)
  Sender: FDA-Public Use
  Company Number: ACO_26015_2011

PATIENT
  Age: 58 Year
  Sex: Female

DRUGS (15)
  1. IMODIUM [Concomitant]
  2. GELATIN [Concomitant]
  3. REBIF [Concomitant]
  4. FISH OIL [Concomitant]
  5. LYRICA [Concomitant]
  6. MOTRIN [Concomitant]
  7. MULTIVITAMIN [Concomitant]
  8. VITAMIN D [Concomitant]
  9. ZIPSOR [Concomitant]
  10. GLUCOSAMINE [Concomitant]
  11. ACETAMINOPHEN [Concomitant]
  12. TUMS (CALCIUM CARBONATE, MAGNESIUM CARBONATE, MAGNESIUM TRISILICATE) [Concomitant]
  13. AMPYRA [Suspect]
     Indication: MULTIPLE SCLEROSIS
     Dosage: 10 MG, BID, ORAL
     Route: 048
     Dates: start: 20110422
  14. ZINC [Concomitant]
  15. NAPROSYN [Concomitant]

REACTIONS (4)
  - ABASIA [None]
  - LOWER RESPIRATORY TRACT INFECTION [None]
  - OROPHARYNGEAL PAIN [None]
  - MULTIPLE SCLEROSIS RELAPSE [None]
